FAERS Safety Report 6999143-8 (Version None)
Quarter: 2010Q3

REPORT INFORMATION
  Report Type: 
  Country: None (occurrence: None)
  Receive Date: 20100920
  Receipt Date: 20100618
  Transmission Date: 20110219
  Serious: No
  Sender: FDA-Public Use
  Company Number: US-ASTRAZENECA-2010SE28851

PATIENT
  Sex: Female
  Weight: 65.8 kg

DRUGS (1)
  1. SEROQUEL XR [Suspect]
     Route: 048

REACTIONS (4)
  - DRY MOUTH [None]
  - DYSPHAGIA [None]
  - GAIT DISTURBANCE [None]
  - HYPERSOMNIA [None]
